FAERS Safety Report 7243628-6 (Version None)
Quarter: 2011Q1

REPORT INFORMATION
  Report Type: 
  Country: None (occurrence: None)
  Receive Date: 20110125
  Receipt Date: 20110114
  Transmission Date: 20110831
  Serious: Yes (Other)
  Sender: FDA-Public Use
  Company Number: PHHY2010AU84772

PATIENT
  Sex: Female

DRUGS (7)
  1. ATARAX [Concomitant]
     Dosage: 100 G, UNK
     Route: 048
     Dates: start: 20100101
  2. PLAVIX [Concomitant]
     Dosage: 750 G, UNK
     Route: 048
  3. BISPHOSPHONATES [Concomitant]
  4. ACLASTA [Suspect]
     Dosage: 5 MG
     Route: 042
     Dates: start: 20100513
  5. PERVENTIL [Concomitant]
     Dosage: 20 G, UNK
     Route: 048
     Dates: start: 20100501
  6. ACLASTA [Suspect]
     Indication: OSTEOPOROSIS
     Dosage: 5 MG
     Route: 042
     Dates: start: 20090518
  7. SOMAR [Concomitant]
     Indication: GASTROOESOPHAGEAL REFLUX DISEASE
     Dosage: 40 G, UNK
     Route: 048
     Dates: start: 20040620

REACTIONS (2)
  - BONE LESION [None]
  - OSTEONECROSIS OF JAW [None]
